FAERS Safety Report 19314469 (Version 2)
Quarter: 2021Q2

REPORT INFORMATION
  Report Type: Report from Study
  Country: US (occurrence: US)
  Receive Date: 20210527
  Receipt Date: 20210609
  Transmission Date: 20210717
  Serious: Yes (Other)
  Sender: FDA-Public Use
  Company Number: US-JNJFOC-20210539237

PATIENT
  Age: 27 Year
  Sex: Female
  Weight: 133.2 kg

DRUGS (6)
  1. SPRAVATO [Suspect]
     Active Substance: ESKETAMINE
     Indication: DEPRESSION
     Dosage: 56 MG, 1 DOSE TOTAL
     Dates: start: 20201110, end: 20201110
  2. SPRAVATO [Suspect]
     Active Substance: ESKETAMINE
     Dosage: 84 MG, TOTAL 1 DOSE
     Dates: start: 20210326, end: 20210326
  3. SPRAVATO [Suspect]
     Active Substance: ESKETAMINE
     Dates: start: 20210518, end: 20210518
  4. SPRAVATO [Suspect]
     Active Substance: ESKETAMINE
     Dosage: 84 MG, 14 DOSES TOTAL
     Dates: start: 20201113, end: 20210118
  5. SPRAVATO [Suspect]
     Active Substance: ESKETAMINE
     Dosage: 112 MG, TOTAL 14 DOSES
     Dates: start: 20210330, end: 20210512
  6. SPRAVATO [Suspect]
     Active Substance: ESKETAMINE
     Dosage: 112 MG, TOTAL 16 DOSES
     Dates: start: 20210120, end: 20210323

REACTIONS (2)
  - Blood pressure increased [Recovered/Resolved]
  - Dissociation [Recovered/Resolved]

NARRATIVE: CASE EVENT DATE: 20210518
